FAERS Safety Report 21035034 (Version 2)
Quarter: 2022Q3

REPORT INFORMATION
  Report Type: Report from Study
  Country: ES (occurrence: ES)
  Receive Date: 20220701
  Receipt Date: 20220708
  Transmission Date: 20221027
  Serious: Yes (Hospitalization)
  Sender: FDA-Public Use
  Company Number: ES-NOVARTISPH-NVSC2022ES139945

PATIENT
  Age: 89 Year
  Sex: Male
  Weight: 59.5 kg

DRUGS (14)
  1. GALLIUM GA-68 GOZETOTIDE [Suspect]
     Active Substance: GALLIUM GA-68 GOZETOTIDE
     Indication: Prostate cancer metastatic
     Dosage: 136 MBQ, ONCE/SINGLE
     Route: 042
     Dates: start: 20220331
  2. LUTETIUM LU-177 VIPIVOTIDE TETRAXETAN [Suspect]
     Active Substance: LUTETIUM LU-177 VIPIVOTIDE TETRAXETAN
     Indication: Prostate cancer metastatic
     Dosage: 196.19 MCI, ONCE/SINGLE
     Route: 042
     Dates: start: 20220609
  3. MIRTAZAPINE [Concomitant]
     Active Substance: MIRTAZAPINE
     Indication: Prophylaxis
     Dosage: UNK
     Route: 065
     Dates: start: 20211216
  4. TEROMOL [Concomitant]
     Indication: Chronic obstructive pulmonary disease
     Dosage: UNK (RETARD)
     Route: 065
     Dates: start: 20171011
  5. ASPIRIN [Concomitant]
     Active Substance: ASPIRIN
     Indication: Prophylaxis
     Dosage: UNK
     Route: 065
     Dates: start: 20141211
  6. OMEPRAZOLE [Concomitant]
     Active Substance: OMEPRAZOLE
     Indication: Diverticulum
     Dosage: UNK
     Route: 065
     Dates: start: 20211015
  7. DECAPEPTYL [Concomitant]
     Indication: Prostate cancer metastatic
     Dosage: UNK
     Route: 065
     Dates: start: 20190111
  8. YANIMO [Concomitant]
     Indication: Chronic obstructive pulmonary disease
     Dosage: UNK (RESPIMAT)
     Route: 065
     Dates: start: 20191212
  9. BUDESONIDE [Concomitant]
     Active Substance: BUDESONIDE
     Indication: Chronic obstructive pulmonary disease
     Dosage: UNK
     Route: 065
     Dates: start: 20200724
  10. FUROSEMIDE [Concomitant]
     Active Substance: FUROSEMIDE
     Indication: Hypertension
     Dosage: UNK
     Route: 065
     Dates: start: 20201221
  11. PREGABALIN [Concomitant]
     Active Substance: PREGABALIN
     Indication: Prophylaxis
     Dosage: UNK
     Route: 065
     Dates: start: 20211102
  12. CHOLECALCIFEROL [Concomitant]
     Active Substance: CHOLECALCIFEROL
     Indication: General physical condition
     Dosage: UNK
     Route: 065
     Dates: start: 20211216
  13. ENZALUTAMIDE [Concomitant]
     Active Substance: ENZALUTAMIDE
     Indication: Prostate cancer
     Dosage: UNK
     Route: 065
     Dates: start: 20200123, end: 20220405
  14. THEOPHYLLINE ANHYDROUS [Concomitant]
     Active Substance: THEOPHYLLINE ANHYDROUS
     Indication: Oesophagitis
     Dosage: UNK
     Route: 065
     Dates: start: 20220616, end: 20220620

REACTIONS (1)
  - Stomatitis [Recovered/Resolved]

NARRATIVE: CASE EVENT DATE: 20220616
